FAERS Safety Report 13058625 (Version 6)
Quarter: 2017Q2

REPORT INFORMATION
  Report Type: Spontaneous
  Country: US (occurrence: US)
  Receive Date: 20161223
  Receipt Date: 20170526
  Transmission Date: 20170830
  Serious: No
  Sender: FDA-Public Use
  Company Number: US-PFIZER INC-2016583475

PATIENT
  Age: 65 Year
  Sex: Female

DRUGS (4)
  1. IBRANCE [Suspect]
     Active Substance: PALBOCICLIB
     Indication: BREAST CANCER FEMALE
     Dosage: 125 MG, CYCLIC (EVERY DAY FOR 21 DAYS THEN TAKE 7 DAYS OFF AS DIRECTED)
     Route: 048
     Dates: start: 20161024
  2. IBRANCE [Suspect]
     Active Substance: PALBOCICLIB
     Dosage: 125 MG, CYCLIC (QD 21 DAYS ON THEN 7 DAYS OFF, REPEAT)
     Route: 048
     Dates: start: 20161111
  3. FASLODEX [Suspect]
     Active Substance: FULVESTRANT
     Dosage: UNK
  4. IBRANCE [Suspect]
     Active Substance: PALBOCICLIB
     Dosage: 125 MG, CYCLIC (DAILY FOR 21 DAYS ON THEN 7 DAYS OFF)
     Dates: end: 20170504

REACTIONS (5)
  - Dysgeusia [Unknown]
  - Fatigue [Unknown]
  - Neoplasm progression [Unknown]
  - Oropharyngeal pain [Unknown]
  - Vision blurred [Unknown]
